FAERS Safety Report 8081740-2 (Version None)
Quarter: 2012Q1

REPORT INFORMATION
  Report Type: 
  Country: None (occurrence: None)
  Receive Date: 20120130
  Receipt Date: 20120124
  Transmission Date: 20120608
  Serious: Yes (Death)
  Sender: FDA-Public Use
  Company Number: US-ELI_LILLY_AND_COMPANY-US201201007212

PATIENT
  Sex: Male

DRUGS (16)
  1. MICRO-K [Concomitant]
  2. LOSARTAN POTASSIUM [Concomitant]
     Dosage: 100 MG, UNK
  3. SIMVASTATIN [Concomitant]
     Dosage: 10 MG, UNK
  4. FOLIC ACID [Concomitant]
  5. PREDNISONE TAB [Concomitant]
  6. TOPROL-XL [Concomitant]
     Dosage: 100 MG, UNK
  7. ALDACTONE [Concomitant]
     Dosage: 100 MG, UNK
  8. ADCIRCA [Suspect]
     Indication: COR PULMONALE CHRONIC
     Dosage: 40 MG, QD
     Dates: start: 20111223
  9. METHOTREXATE [Concomitant]
  10. BUMEX [Concomitant]
  11. NIFEREX [Concomitant]
  12. NOVOLOG MIX 70/30 [Concomitant]
  13. ASPIRIN [Concomitant]
     Dosage: 81 MG, UNK
  14. PROTONIX [Concomitant]
     Dosage: 20 MG, UNK
  15. CARAFATE [Concomitant]
  16. COUMADIN [Concomitant]
     Dosage: 1 MG, UNK

REACTIONS (1)
  - DEATH [None]
